FAERS Safety Report 20976669 (Version 1)
Quarter: 2022Q2

REPORT INFORMATION
  Report Type: Spontaneous
  Country: US (occurrence: None)
  Receive Date: 20220617
  Receipt Date: 20220617
  Transmission Date: 20220721
  Serious: No
  Sender: FDA-Public Use
  Company Number: None

PATIENT

DRUGS (1)
  1. NOREPINEPHRINE BITARTRATE [Suspect]
     Active Substance: NOREPINEPHRINE BITARTRATE

REACTIONS (5)
  - Extra dose administered [None]
  - Headache [None]
  - Flushing [None]
  - Blood pressure increased [None]
  - Wrong technique in product usage process [None]
